FAERS Safety Report 7804219-9 (Version None)
Quarter: 2011Q4

REPORT INFORMATION
  Report Type: 
  Country: None (occurrence: None)
  Receive Date: 20111010
  Receipt Date: 20110928
  Transmission Date: 20120403
  Serious: Yes (Other)
  Sender: FDA-Public Use
  Company Number: GB-SANOFI-AVENTIS-2011SA045153

PATIENT
  Age: 70 Year
  Sex: Male

DRUGS (2)
  1. WARFARIN SODIUM [Concomitant]
  2. MULTAQ [Suspect]
     Route: 048
     Dates: start: 20110520

REACTIONS (7)
  - ABDOMINAL PAIN [None]
  - MUSCLE SPASMS [None]
  - BLOOD CREATININE INCREASED [None]
  - HAEMATURIA [None]
  - RENAL COLIC [None]
  - OLIGURIA [None]
  - RENAL FAILURE ACUTE [None]
